FAERS Safety Report 20574037 (Version 1)
Quarter: 2022Q1

REPORT INFORMATION
  Report Type: Report from Study
  Country: CA (occurrence: CA)
  Receive Date: 20220309
  Receipt Date: 20220309
  Transmission Date: 20220423
  Serious: Yes (Hospitalization, Other)
  Sender: FDA-Public Use
  Company Number: CA-PFIZER INC-202200332509

PATIENT
  Age: 85 Year
  Sex: Female

DRUGS (17)
  1. RITUXIMAB [Suspect]
     Active Substance: RITUXIMAB
     Indication: Rheumatoid arthritis
     Dosage: 1000 MG
     Route: 042
  2. NITROFURANTOIN [Suspect]
     Active Substance: NITROFURANTOIN
     Route: 065
  3. ASPIRIN [Concomitant]
     Active Substance: ASPIRIN
     Dosage: 81 MG
     Route: 065
  4. ARTHROTEC [Concomitant]
     Active Substance: DICLOFENAC SODIUM\MISOPROSTOL
     Dosage: 50 MG
     Route: 065
  5. FELODIPINE [Concomitant]
     Active Substance: FELODIPINE
     Dosage: 2.5 MG
     Route: 048
  6. FOLIC ACID [Concomitant]
     Active Substance: FOLIC ACID
  7. GLUCOSAMINE [Concomitant]
     Active Substance: GLUCOSAMINE
  8. LYRICA [Concomitant]
     Active Substance: PREGABALIN
     Dosage: 75 MG
     Route: 065
  9. PANTOPRAZOLE [Concomitant]
     Active Substance: PANTOPRAZOLE
  10. PREDNISONE [Concomitant]
     Active Substance: PREDNISONE
     Dosage: 2.5 MG, DAILY
     Route: 065
  11. PREDNISONE [Concomitant]
     Active Substance: PREDNISONE
     Dosage: 5 MG, DAILY
     Route: 065
  12. RISEDRONATE SODIUM [Concomitant]
     Active Substance: RISEDRONATE SODIUM
     Dosage: 135 MG
     Route: 065
  13. ROSUVASTATIN CALCIUM [Concomitant]
     Active Substance: ROSUVASTATIN CALCIUM
     Dosage: 10 MG
     Route: 065
  14. SENOKOT [Concomitant]
     Active Substance: SENNOSIDES
  15. SYNTHROID [Concomitant]
     Active Substance: LEVOTHYROXINE SODIUM
     Route: 065
  16. TELMISARTAN [Concomitant]
     Active Substance: TELMISARTAN
     Dosage: 40 MG
     Route: 048
  17. VALSARTAN [Concomitant]
     Active Substance: VALSARTAN

REACTIONS (7)
  - Cerebrovascular accident [Unknown]
  - Drug hypersensitivity [Unknown]
  - Fall [Unknown]
  - Hip fracture [Unknown]
  - Osteoarthritis [Unknown]
  - Peripheral vascular disorder [Unknown]
  - Urinary tract infection [Unknown]
